FAERS Safety Report 13076339 (Version 1)
Quarter: 2016Q4

REPORT INFORMATION
  Report Type: Spontaneous
  Country: US (occurrence: US)
  Receive Date: 20161230
  Receipt Date: 20161230
  Transmission Date: 20170207
  Serious: Yes (Other)
  Sender: FDA-Public Use
  Company Number: US-JNJFOC-20161211624

PATIENT
  Age: 43 Year
  Sex: Male

DRUGS (1)
  1. STELARA [Suspect]
     Active Substance: USTEKINUMAB
     Indication: PSORIASIS
     Route: 058
     Dates: start: 20130801

REACTIONS (6)
  - Stress [Unknown]
  - Erectile dysfunction [Not Recovered/Not Resolved]
  - Drug dose omission [Unknown]
  - Blood glucose increased [Unknown]
  - White blood cell count increased [Unknown]
  - Haematocrit increased [Unknown]

NARRATIVE: CASE EVENT DATE: 201609
